FAERS Safety Report 11618578 (Version 1)
Quarter: 2015Q4

REPORT INFORMATION
  Report Type: Other
  Country: NL (occurrence: NL)
  Receive Date: 20151012
  Receipt Date: 20151012
  Transmission Date: 20160304
  Serious: No
  Sender: FDA-Public Use
  Company Number: NL-LUPIN PHARMACEUTICALS INC.-2015-01407

PATIENT
  Age: 62 Year
  Sex: Male

DRUGS (1)
  1. CEFTRIAXON [Suspect]
     Active Substance: CEFTRIAXONE
     Indication: LYME DISEASE
     Route: 042

REACTIONS (1)
  - Hypersensitivity [Unknown]
